FAERS Safety Report 9056362 (Version 1)
Quarter: 2013Q1

REPORT INFORMATION
  Report Type: Spontaneous
  Country: US (occurrence: US)
  Receive Date: 20130204
  Receipt Date: 20130204
  Transmission Date: 20140127
  Serious: Yes (Life-Threatening, Hospitalization)
  Sender: FDA-Public Use
  Company Number: US-MYLANLABS-2013S1001665

PATIENT
  Age: 53 Year
  Sex: Female

DRUGS (8)
  1. DIGOXIN [Suspect]
     Indication: INTENTIONAL OVERDOSE
     Dosage: ESTIMATED AS 60 TABLETS (15MG)
     Route: 048
  2. DIGOXIN [Suspect]
     Indication: INTENTIONAL OVERDOSE
     Dosage: 0.25 MG/DAY
     Route: 065
  3. NIFEDIPINE [Concomitant]
     Dosage: 60 MG/DAY
     Route: 065
  4. PROPAFENONE [Concomitant]
     Route: 065
  5. HYDROCHLOROTHIAZIDE [Concomitant]
     Dosage: 25 MG/DAY
     Route: 065
  6. ROSUVASTATIN [Concomitant]
     Dosage: 20 MG/DAY
     Route: 065
  7. PHENYTOIN [Concomitant]
     Route: 065
  8. SALBUTAMOL [Concomitant]
     Dosage: PRN
     Route: 055

REACTIONS (13)
  - Intentional overdose [Recovering/Resolving]
  - Toxicity to various agents [Recovering/Resolving]
  - Toxicity to various agents [Recovering/Resolving]
  - Suicide attempt [Recovering/Resolving]
  - Ventricular extrasystoles [Recovering/Resolving]
  - Ventricular fibrillation [Recovered/Resolved]
  - Tachycardia [Recovered/Resolved]
  - Atrioventricular block first degree [Recovered/Resolved]
  - Nausea [Recovered/Resolved]
  - Vomiting [Recovered/Resolved]
  - Abdominal pain [Recovered/Resolved]
  - Dyspnoea [Recovered/Resolved]
  - Chest discomfort [Recovered/Resolved]
